FAERS Safety Report 9866331 (Version 1)
Quarter: 2014Q1

REPORT INFORMATION
  Report Type: Spontaneous
  Country: US (occurrence: US)
  Receive Date: 20140203
  Receipt Date: 20140203
  Transmission Date: 20141002
  Serious: No
  Sender: FDA-Public Use
  Company Number: US-ALLERGAN-1319448US

PATIENT
  Age: 59 Year
  Sex: Female

DRUGS (2)
  1. RESTASIS [Suspect]
     Indication: DRY EYE
     Dosage: 2 GTT, BID
     Route: 047
     Dates: start: 20131127, end: 20131201
  2. RESTASIS [Suspect]
     Dosage: 2 GTT, UNK
     Route: 047
     Dates: start: 201308, end: 20131126

REACTIONS (10)
  - Inappropriate schedule of drug administration [Unknown]
  - Eyelid disorder [Recovering/Resolving]
  - Swelling face [Recovering/Resolving]
  - Eyelid irritation [Not Recovered/Not Resolved]
  - Skin irritation [Not Recovered/Not Resolved]
  - Eye irritation [Recovered/Resolved]
  - Scleral hyperaemia [Recovering/Resolving]
  - Scleral hyperaemia [Not Recovered/Not Resolved]
  - Erythema of eyelid [Not Recovered/Not Resolved]
  - Eye discharge [Recovering/Resolving]
